FAERS Safety Report 6759512-8 (Version None)
Quarter: 2010Q2

REPORT INFORMATION
  Report Type: 
  Country: None (occurrence: None)
  Receive Date: 20100603
  Receipt Date: 20100521
  Transmission Date: 20101027
  Serious: Yes (Other)
  Sender: FDA-Public Use
  Company Number: 2010SP029585

PATIENT
  Age: 43 Year
  Sex: Male

DRUGS (1)
  1. CLARITIN [Suspect]
     Indication: RHINITIS ALLERGIC
     Dosage: 10 MG; PO
     Route: 048

REACTIONS (2)
  - FACE OEDEMA [None]
  - PERIORBITAL OEDEMA [None]
